FAERS Safety Report 7504108-3 (Version None)
Quarter: 2011Q2

REPORT INFORMATION
  Report Type: 
  Country: None (occurrence: None)
  Receive Date: 20110401
  Receipt Date: 20110310
  Transmission Date: 20111010
  Serious: No
  Sender: FDA-Public Use
  Company Number: US-004895

PATIENT
  Sex: Male

DRUGS (1)
  1. FIRMAGON [Suspect]
     Indication: PROSTATE CANCER

REACTIONS (3)
  - PENILE SIZE REDUCED [None]
  - HOT FLUSH [None]
  - MALE GENITAL EXAMINATION ABNORMAL [None]
